FAERS Safety Report 18657235 (Version 3)
Quarter: 2021Q3

REPORT INFORMATION
  Report Type: Report from Study
  Country: US (occurrence: US)
  Receive Date: 20201223
  Receipt Date: 20210816
  Transmission Date: 20211014
  Serious: Yes (Other)
  Sender: FDA-Public Use
  Company Number: US-TAKEDA-2020TUS058325

PATIENT
  Age: 45 Year
  Sex: Male
  Weight: 77 kg

DRUGS (5)
  1. VEDOLIZUMAB [Suspect]
     Active Substance: VEDOLIZUMAB
     Indication: CROHN^S DISEASE
     Dosage: 300 MILLIGRAM
     Route: 042
     Dates: start: 202010
  2. LEXAPRO [Concomitant]
     Active Substance: ESCITALOPRAM OXALATE
     Indication: MIGRAINE
     Dosage: 40 MILLIGRAM, QD
  3. LEXAPRO [Concomitant]
     Active Substance: ESCITALOPRAM OXALATE
     Indication: ANXIETY
  4. LEXAPRO [Concomitant]
     Active Substance: ESCITALOPRAM OXALATE
     Indication: DEPRESSION
  5. PANTOPRAZOLE [Concomitant]
     Active Substance: PANTOPRAZOLE
     Indication: GASTROOESOPHAGEAL REFLUX DISEASE
     Dosage: 40 MILLIGRAM

REACTIONS (11)
  - Head discomfort [Not Recovered/Not Resolved]
  - Gastrointestinal bacterial overgrowth [Unknown]
  - Dysphonia [Not Recovered/Not Resolved]
  - Otorrhoea [Not Recovered/Not Resolved]
  - Dyspnoea [Unknown]
  - Ear congestion [Unknown]
  - Vertigo [Not Recovered/Not Resolved]
  - Abdominal pain upper [Unknown]
  - Clostridium difficile infection [Unknown]
  - Oropharyngeal pain [Not Recovered/Not Resolved]
  - Hypersensitivity [Unknown]

NARRATIVE: CASE EVENT DATE: 20210219
